FAERS Safety Report 25702979 (Version 1)
Quarter: 2025Q3

REPORT INFORMATION
  Report Type: Report from Study
  Country: US (occurrence: US)
  Receive Date: 20250819
  Receipt Date: 20250819
  Transmission Date: 20251020
  Serious: Yes (Hospitalization, Other)
  Sender: ABBVIE
  Company Number: US-ABBVIE-5759660

PATIENT
  Age: 75 Year
  Sex: Female

DRUGS (2)
  1. SKYRIZI [Suspect]
     Active Substance: RISANKIZUMAB-RZAA
     Indication: Psoriasis
     Route: 058
     Dates: start: 20231220, end: 202501
  2. SKYRIZI [Suspect]
     Active Substance: RISANKIZUMAB-RZAA
     Route: 058

REACTIONS (16)
  - Pneumonia [Not Recovered/Not Resolved]
  - Urinary tract infection [Recovered/Resolved]
  - Psoriasis [Unknown]
  - Bladder disorder [Not Recovered/Not Resolved]
  - Product dispensing error [Unknown]
  - Escherichia infection [Not Recovered/Not Resolved]
  - Insomnia [Unknown]
  - Neoplasm [Unknown]
  - Immunodeficiency [Not Recovered/Not Resolved]
  - Upper respiratory tract infection [Recovering/Resolving]
  - Urinary tract infection [Recovered/Resolved]
  - Road traffic accident [Unknown]
  - Urinary tract infection [Unknown]
  - Vomiting [Unknown]
  - Diarrhoea [Unknown]
  - Scab [Recovered/Resolved]

NARRATIVE: CASE EVENT DATE: 20240401
